FAERS Safety Report 6527507-5 (Version None)
Quarter: 2010Q1

REPORT INFORMATION
  Report Type: 
  Country: None (occurrence: None)
  Receive Date: 20100105
  Receipt Date: 20091222
  Transmission Date: 20100710
  Serious: Yes (Hospitalization)
  Sender: FDA-Public Use
  Company Number: NP-MYLANLABS-2009S1021842

PATIENT
  Age: 27 Year
  Sex: Female
  Weight: 56 kg

DRUGS (7)
  1. FENTANYL-100 [Suspect]
     Indication: INDUCTION OF ANAESTHESIA
  2. PROPOFOL [Suspect]
     Indication: INDUCTION OF ANAESTHESIA
  3. VECURONIUM BROMIDE [Suspect]
     Indication: INDUCTION OF ANAESTHESIA
  4. HALOTHANE [Suspect]
     Dosage: 1.5% IN OXYGEN (3 MIN), THEN 2%, THEN 1%.
  5. LABETALOL HCL [Suspect]
     Dosage: ADMINISTERED IN INCREMENTS
  6. GABAPENTIN [Concomitant]
     Indication: PREMEDICATION
     Route: 048
  7. CEFTRIAXONE [Concomitant]
     Route: 042

REACTIONS (1)
  - CARDIAC ARREST [None]
